FAERS Safety Report 18308726 (Version 4)
Quarter: 2022Q2

REPORT INFORMATION
  Report Type: Spontaneous
  Country: JP (occurrence: JP)
  Receive Date: 20200924
  Receipt Date: 20220518
  Transmission Date: 20220721
  Serious: Yes (Death)
  Sender: FDA-Public Use
  Company Number: JP-EISAI-202005043_LEN-HCC_P_1

PATIENT
  Sex: Male
  Weight: 57 kg

DRUGS (5)
  1. LENVIMA [Suspect]
     Active Substance: LENVATINIB
     Indication: Hepatocellular carcinoma
     Route: 048
     Dates: start: 20200904, end: 20200906
  2. BICALUTAMIDE [Concomitant]
     Active Substance: BICALUTAMIDE
     Indication: Product used for unknown indication
     Dosage: DOSAGE AND FREQUENCY UNKNOWN
     Route: 065
  3. TAMSULOSIN [Concomitant]
     Active Substance: TAMSULOSIN
     Indication: Product used for unknown indication
     Dosage: DOSAGE AND FREQUENCY UNKNOWN
     Route: 065
  4. AZELNIDIPINE [Concomitant]
     Active Substance: AZELNIDIPINE
     Indication: Product used for unknown indication
     Dosage: DOSAGE AND FREQUENCY UNKNOWN
     Route: 065
  5. BEZAFIBRATE [Concomitant]
     Active Substance: BEZAFIBRATE
     Indication: Product used for unknown indication
     Dosage: DOSAGE AND FREQUENCY UNKNOWN
     Route: 065

REACTIONS (1)
  - Liver carcinoma ruptured [Fatal]

NARRATIVE: CASE EVENT DATE: 20200906
